FAERS Safety Report 15380191 (Version 1)
Quarter: 2018Q3

REPORT INFORMATION
  Report Type: Spontaneous
  Country: US (occurrence: US)
  Receive Date: 20180913
  Receipt Date: 20180913
  Transmission Date: 20181010
  Serious: No
  Sender: FDA-Public Use
  Company Number: US-ASTELLAS-2018US018646

PATIENT
  Age: 58 Year
  Sex: Male

DRUGS (1)
  1. XTANDI [Suspect]
     Active Substance: ENZALUTAMIDE
     Indication: PRODUCT USED FOR UNKNOWN INDICATION
     Route: 048

REACTIONS (10)
  - Weight decreased [Unknown]
  - Hot flush [Unknown]
  - Insomnia [Unknown]
  - Back pain [Unknown]
  - Somnolence [Unknown]
  - Diarrhoea [Unknown]
  - Decreased appetite [Unknown]
  - Constipation [Unknown]
  - Fatigue [Unknown]
  - Headache [Unknown]

NARRATIVE: CASE EVENT DATE: 20180416
